FAERS Safety Report 20757479 (Version 1)
Quarter: 2022Q2

REPORT INFORMATION
  Report Type: Spontaneous
  Country: US (occurrence: None)
  Receive Date: 20220427
  Receipt Date: 20220427
  Transmission Date: 20220721
  Serious: Yes (Hospitalization)
  Sender: FDA-Public Use
  Company Number: None

PATIENT
  Sex: Female

DRUGS (10)
  1. BENLYSTA [Suspect]
     Active Substance: BELIMUMAB
     Indication: Systemic lupus erythematosus
     Dosage: FREQUENCY : WEEKLY;?
     Route: 058
     Dates: start: 20211001
  2. AZITHROMYCIN [Concomitant]
  3. CELECOXIB CAP [Concomitant]
  4. COUGH DM SUS [Concomitant]
  5. FEROSUL TAB [Concomitant]
  6. FEXOFENADINE HCL [Concomitant]
     Active Substance: FEXOFENADINE HYDROCHLORIDE
  7. HYDROCHLOROT TAB [Concomitant]
  8. LEVOCETIRIZI TAB [Concomitant]
  9. METHYLPRED TAB [Concomitant]
  10. OSELTAMIVIR CAP [Concomitant]

REACTIONS (7)
  - Systemic lupus erythematosus [None]
  - Cough [None]
  - Dry mouth [None]
  - Generalised oedema [None]
  - Arthralgia [None]
  - Butterfly rash [None]
  - Stomatitis [None]
